FAERS Safety Report 14248244 (Version 3)
Quarter: 2019Q2

REPORT INFORMATION
  Report Type: Spontaneous
  Country: SE (occurrence: SE)
  Receive Date: 20171204
  Receipt Date: 20190625
  Transmission Date: 20190711
  Serious: Yes (Other)
  Sender: FDA-Public Use
  Company Number: SE-INDIVIOR LIMITED-INDV-106647-2017

PATIENT
  Age: 21 Year
  Sex: Female

DRUGS (4)
  1. ANALGESICS [Suspect]
     Active Substance: UNSPECIFIED INGREDIENT
     Indication: PRODUCT USED FOR UNKNOWN INDICATION
     Dosage: UNK
     Route: 065
  2. BENZODIAZEPINE DERIVATIVES [Suspect]
     Active Substance: BENZODIAZEPINE
     Indication: MENTAL DISORDER
     Dosage: UNK
     Route: 065
  3. OPIOIDS [Suspect]
     Active Substance: UNSPECIFIED INGREDIENT
     Indication: PRODUCT USED FOR UNKNOWN INDICATION
     Dosage: UNK
     Route: 065
  4. SUBUTEX [Suspect]
     Active Substance: BUPRENORPHINE HYDROCHLORIDE
     Indication: PRODUCT USED FOR UNKNOWN INDICATION
     Dosage: UNK
     Route: 065

REACTIONS (3)
  - Suicidal ideation [Unknown]
  - Drug ineffective [Unknown]
  - Substance abuse [Unknown]
